FAERS Safety Report 14313674 (Version 2)
Quarter: 2018Q1

REPORT INFORMATION
  Report Type: Report from Study
  Country: FR (occurrence: FR)
  Receive Date: 20171221
  Receipt Date: 20180215
  Transmission Date: 20180509
  Serious: Yes (Death)
  Sender: FDA-Public Use
  Company Number: FR-AUROBINDO-AUR-APL-2017-45342

PATIENT
  Age: 64 Year
  Sex: Male
  Weight: 88 kg

DRUGS (1)
  1. AZITHROMYCIN ARROW [Suspect]
     Active Substance: AZITHROMYCIN ANHYDROUS
     Indication: OBLITERATIVE BRONCHIOLITIS
     Dosage: UNK
     Route: 048
     Dates: start: 20150227, end: 20150418

REACTIONS (5)
  - Renal failure [Fatal]
  - Oliguria [Fatal]
  - Electrolyte imbalance [Fatal]
  - Hepatocellular injury [Fatal]
  - Cholestasis [Fatal]

NARRATIVE: CASE EVENT DATE: 20150404
